FAERS Safety Report 8988101 (Version 1)
Quarter: 2012Q4

REPORT INFORMATION
  Report Type: 
  Country: FR (occurrence: FR)
  Receive Date: 20121227
  Receipt Date: 20121227
  Transmission Date: 20130627
  Serious: Yes (Hospitalization, Other)
  Sender: FDA-Public Use
  Company Number: FR-PFIZER INC-2012328522

PATIENT
  Age: 90 Year
  Sex: Male

DRUGS (5)
  1. CORDARONE [Suspect]
     Indication: ATRIAL FIBRILLATION
     Dosage: 200 mg, daily
     Route: 048
     Dates: start: 20121011
  2. AMLODIPINE BESILATE [Interacting]
     Indication: HYPERTENSION ARTERIAL
     Dosage: 5 mg, daily
     Route: 048
     Dates: end: 20121031
  3. KARDEGIC [Interacting]
     Indication: ISCHAEMIC HEART DISEASE
     Dosage: UNK
     Route: 048
     Dates: end: 20121031
  4. PRADAXA [Interacting]
     Indication: ATRIAL FIBRILLATION
     Dosage: 220 mg, daily
     Route: 048
     Dates: start: 20121011, end: 20121029
  5. CALCIPARIN [Concomitant]
     Dosage: UNK
     Dates: start: 20121029, end: 20121031

REACTIONS (11)
  - Drug interaction [Recovering/Resolving]
  - Haemorrhage [Recovered/Resolved]
  - Factor II deficiency [Recovering/Resolving]
  - Factor V deficiency [Recovering/Resolving]
  - Coagulation factor X level decreased [Recovering/Resolving]
  - Activated partial thromboplastin time [Recovering/Resolving]
  - International normalised ratio increased [Recovering/Resolving]
  - Cardiopulmonary failure [Unknown]
  - Lung disorder [Unknown]
  - Sepsis [Unknown]
  - Renal failure [Unknown]
